FAERS Safety Report 18238701 (Version 1)
Quarter: 2020Q3

REPORT INFORMATION
  Report Type: Spontaneous
  Country: US (occurrence: US)
  Receive Date: 20200907
  Receipt Date: 20200907
  Transmission Date: 20201103
  Serious: Yes (Hospitalization, Other)
  Sender: FDA-Public Use
  Company Number: US-INCYTE CORPORATION-2020IN008467

PATIENT

DRUGS (1)
  1. JAKAFI [Suspect]
     Active Substance: RUXOLITINIB
     Indication: MYELODYSPLASTIC SYNDROME
     Dosage: 10 MILLIGRAM, BID
     Route: 048
     Dates: start: 20200619, end: 20200823

REACTIONS (4)
  - Drug effect less than expected [Unknown]
  - Off label use [Unknown]
  - Leukaemia [Unknown]
  - Infection [Unknown]

NARRATIVE: CASE EVENT DATE: 20200619
